FAERS Safety Report 8093258-1 (Version None)
Quarter: 2012Q1

REPORT INFORMATION
  Report Type: 
  Country: None (occurrence: None)
  Receive Date: 20120128
  Receipt Date: 20110910
  Transmission Date: 20120608
  Serious: No
  Sender: FDA-Public Use
  Company Number: US-ABBOTT-11P-163-0729747-00

PATIENT
  Age: 46 Year
  Sex: Female

DRUGS (10)
  1. INDERAL LA [Concomitant]
     Indication: MIGRAINE
  2. MOBIC [Concomitant]
     Indication: PRODUCT USED FOR UNKNOWN INDICATION
  3. CYMBALTA [Concomitant]
     Indication: FIBROMYALGIA
  4. FIBER LAXATIVE [Concomitant]
     Indication: PRODUCT USED FOR UNKNOWN INDICATION
  5. HUMIRA [Suspect]
     Indication: RHEUMATOID ARTHRITIS
     Dates: start: 20110601
  6. SULFASALAZINE [Concomitant]
     Indication: RHEUMATOID ARTHRITIS
  7. LYRICA [Concomitant]
     Indication: NEURALGIA
  8. CRESTOR [Concomitant]
     Indication: BLOOD CHOLESTEROL INCREASED
  9. DOCUSATE SODIUM [Concomitant]
     Indication: CONSTIPATION PROPHYLAXIS
     Dosage: AT BEDTIME
  10. PRILOSEC [Concomitant]
     Indication: GASTRIC ULCER

REACTIONS (1)
  - INJECTION SITE PAIN [None]
